FAERS Safety Report 8211413-4 (Version None)
Quarter: 2012Q1

REPORT INFORMATION
  Report Type: 
  Country: None (occurrence: None)
  Receive Date: 20120315
  Receipt Date: 20120305
  Transmission Date: 20120608
  Serious: Yes (Other)
  Sender: FDA-Public Use
  Company Number: FR-PFIZER INC-2012066188

PATIENT
  Age: 61 Year
  Sex: Male

DRUGS (8)
  1. DEPAKOTE [Suspect]
     Indication: ABNORMAL BEHAVIOUR
     Dosage: 500 MG, 3X/DAY
     Route: 048
     Dates: end: 20120131
  2. ATARAX [Suspect]
     Indication: ABNORMAL BEHAVIOUR
     Dosage: 2 DF, DAILY
     Route: 048
  3. ZYPREXA [Suspect]
     Indication: ABNORMAL BEHAVIOUR
     Dosage: 10 MG, 2X/DAY
     Route: 048
     Dates: end: 20120131
  4. IMOVANE [Suspect]
     Indication: ABNORMAL BEHAVIOUR
     Dosage: 1 DF, DAILY
     Route: 048
  5. LEPTICUR [Suspect]
     Indication: ABNORMAL BEHAVIOUR
     Dosage: 2 DF, DAILY
     Route: 048
  6. ALPRAZOLAM [Suspect]
     Indication: ABNORMAL BEHAVIOUR
     Dosage: 0.5 MG, 3X/DAY
     Route: 048
  7. TRIMEPRAZINE TARTRATE [Suspect]
     Indication: ABNORMAL BEHAVIOUR
     Route: 048
  8. MINOZINAN [Suspect]
     Indication: ABNORMAL BEHAVIOUR
     Route: 048

REACTIONS (1)
  - THROMBOCYTOPENIA [None]
